FAERS Safety Report 18576917 (Version 1)
Quarter: 2020Q4

REPORT INFORMATION
  Report Type: Spontaneous
  Country: US (occurrence: US)
  Receive Date: 20201203
  Receipt Date: 20201203
  Transmission Date: 20210114
  Serious: Yes (Other)
  Sender: FDA-Public Use
  Company Number: US-FRESENIUS KABI-FK202012758

PATIENT
  Age: 43 Year
  Sex: Male

DRUGS (4)
  1. FOLINIC ACID [Concomitant]
     Active Substance: LEUCOVORIN
     Indication: COLON CANCER
     Dosage: AS PART OF FOLFOX REGIMEN
     Route: 065
     Dates: start: 201904
  2. FLUOROURACIL (MANUFACTURER UNKNOWN) [Suspect]
     Active Substance: FLUOROURACIL
     Dosage: RESIDUAL CHEMOTHERAPY REMAINING IN THE PUMP (13 ML OR 645 MG)
     Route: 042
     Dates: start: 2019
  3. OXALIPLATIN. [Concomitant]
     Active Substance: OXALIPLATIN
     Indication: COLON CANCER
     Dosage: AS PART OF FOLFOX REGIMEN
     Route: 065
     Dates: start: 201904
  4. FLUOROURACIL (MANUFACTURER UNKNOWN) [Suspect]
     Active Substance: FLUOROURACIL
     Indication: COLON CANCER
     Dosage: 46H CONTINUOUS PUMP INFUSION
     Route: 042
     Dates: start: 201904

REACTIONS (4)
  - Deep vein thrombosis [Unknown]
  - Pulmonary embolism [Unknown]
  - Extravasation [Unknown]
  - Intercepted product administration error [Unknown]
